FAERS Safety Report 8367222-9 (Version None)
Quarter: 2012Q2

REPORT INFORMATION
  Report Type: 
  Country: None (occurrence: None)
  Receive Date: 20120517
  Receipt Date: 20120511
  Transmission Date: 20120825
  Serious: Yes (Other)
  Sender: FDA-Public Use
  Company Number: PHHY2012FR040976

PATIENT
  Age: 4 Year
  Sex: Male

DRUGS (6)
  1. TACROLIMUS [Interacting]
     Indication: RENAL FAILURE CHRONIC
     Dosage: 2.5 MG, UNK
  2. PREDNISONE TAB [Concomitant]
     Indication: RENAL FAILURE CHRONIC
     Dosage: UNK
     Dates: start: 20081001
  3. MYCOPHENOLATE MOFETIL [Concomitant]
     Indication: RENAL FAILURE CHRONIC
     Dosage: UNK
     Dates: start: 20081001
  4. AMLODIPINE BESYLATE [Suspect]
     Indication: HYPERTENSION
     Dosage: 0.5 MG/KG/DAY
     Dates: start: 20091001
  5. TACROLIMUS [Interacting]
     Dosage: 2 MG, UNK
  6. PROGRAF [Interacting]
     Indication: RENAL FAILURE CHRONIC
     Dosage: UNK
     Dates: start: 20081001

REACTIONS (2)
  - DRUG INTERACTION [None]
  - IMMUNOSUPPRESSANT DRUG LEVEL INCREASED [None]
